FAERS Safety Report 4377197-5 (Version None)
Quarter: 2004Q2

REPORT INFORMATION
  Report Type: 
  Country: None (occurrence: None)
  Receive Date: 20040614
  Receipt Date: 20040614
  Transmission Date: 20050107
  Serious: No
  Sender: FDA-Public Use
  Company Number: None

PATIENT
  Age: 84 Year
  Sex: Male
  Weight: 81.6475 kg

DRUGS (1)
  1. BETAMETHASONE [Suspect]
     Indication: ARTHRITIS
     Dosage: 1 CC X 1 INTRA-ARTOCI;
     Route: 013
     Dates: start: 20040512, end: 20040512

REACTIONS (3)
  - ARTHRITIS BACTERIAL [None]
  - POST PROCEDURAL COMPLICATION [None]
  - SERRATIA INFECTION [None]
